FAERS Safety Report 8404391 (Version 4)
Quarter: 2014Q2

REPORT INFORMATION
  Report Type: Spontaneous
  Country: JP (occurrence: JP)
  Receive Date: 20120214
  Receipt Date: 20131017
  Transmission Date: 20141212
  Serious: Yes (Life-Threatening, Other)
  Sender: FDA-Public Use
  Company Number: JP-PFIZER INC-2012035054

PATIENT
  Age: 65 Year
  Sex: Male

DRUGS (1)
  1. SOLU-CORTEF [Suspect]
     Dosage: UNK

REACTIONS (1)
  - Platelet count decreased [Unknown]
